FAERS Safety Report 12891025 (Version 1)
Quarter: 2016Q4

REPORT INFORMATION
  Report Type: Spontaneous
  Country: US (occurrence: US)
  Receive Date: 20161027
  Receipt Date: 20161027
  Transmission Date: 20170207
  Serious: Yes (Other)
  Sender: FDA-Public Use
  Company Number: US-RELYPSA-RLY2016003175

PATIENT
  Sex: Male

DRUGS (4)
  1. VELTASSA [Suspect]
     Active Substance: PATIROMER
     Indication: PRODUCT USED FOR UNKNOWN INDICATION
     Dosage: 8.4 G, QD
     Route: 048
  2. WARFARIN [Concomitant]
     Active Substance: WARFARIN
  3. TRAMADOL. [Concomitant]
     Active Substance: TRAMADOL
     Dosage: UNK
  4. SOTALOL. [Concomitant]
     Active Substance: SOTALOL

REACTIONS (2)
  - Surgery [Unknown]
  - Constipation [Unknown]

NARRATIVE: CASE EVENT DATE: 2016
